FAERS Safety Report 6327078-2 (Version None)
Quarter: 2009Q3

REPORT INFORMATION
  Report Type: 
  Country: None (occurrence: None)
  Receive Date: 20090818
  Receipt Date: 20090622
  Transmission Date: 20100115
  Serious: No
  Sender: FDA-Public Use
  Company Number: WAES 0906USA04132

PATIENT
  Sex: Female

DRUGS (6)
  1. JANUVIA [Suspect]
     Indication: DIABETES MELLITUS
     Dosage: 100 MG/DAILY/PO
     Route: 048
     Dates: start: 20080501
  2. GLIPIZIDE [Suspect]
     Dosage: PRN
  3. AVALIDE [Concomitant]
  4. L-THYROXIN [Concomitant]
  5. OXYBUTYNIN [Concomitant]
  6. SIMVASTATIN [Concomitant]

REACTIONS (1)
  - MEDICATION RESIDUE [None]
